FAERS Safety Report 23271723 (Version 1)
Quarter: 2023Q4

REPORT INFORMATION
  Report Type: Spontaneous
  Country: CA (occurrence: CA)
  Receive Date: 20231207
  Receipt Date: 20231207
  Transmission Date: 20240110
  Serious: Yes (Hospitalization, Other)
  Sender: FDA-Public Use
  Company Number: CA-009507513-2312CAN000981

PATIENT
  Age: 74 Year
  Weight: 66 kg

DRUGS (1)
  1. KEYTRUDA [Suspect]
     Active Substance: PEMBROLIZUMAB
     Indication: Lung cancer metastatic
     Dosage: 142.2 MILLIGRAM, CYCLICAL
     Route: 042

REACTIONS (4)
  - Electrocardiogram ST segment elevation [Recovering/Resolving]
  - Serum ferritin increased [Recovering/Resolving]
  - C-reactive protein increased [Recovering/Resolving]
  - Chest pain [Recovering/Resolving]
